FAERS Safety Report 23719450 (Version 1)
Quarter: 2024Q2

REPORT INFORMATION
  Report Type: Spontaneous
  Country: FR (occurrence: FR)
  Receive Date: 20240408
  Receipt Date: 20240408
  Transmission Date: 20240716
  Serious: Yes (Hospitalization)
  Sender: FDA-Public Use
  Company Number: None

PATIENT
  Age: 74 Year
  Sex: Male
  Weight: 76 kg

DRUGS (8)
  1. ALLOPURINOL [Suspect]
     Active Substance: ALLOPURINOL
     Indication: Gout
     Route: 048
     Dates: start: 20240214, end: 20240219
  2. TERBUTALINE SULFATE [Suspect]
     Active Substance: TERBUTALINE SULFATE
     Indication: Asthmatic crisis
     Dosage: SULFATE DE TERBUTALINE
     Route: 065
     Dates: start: 20240210, end: 20240218
  3. NALOXEGOL OXALATE [Concomitant]
     Active Substance: NALOXEGOL OXALATE
     Indication: Product used for unknown indication
     Dosage: NALOXEGOL (OXALATE DE)
     Route: 065
     Dates: start: 20240211
  4. CLINDAMYCIN HYDROCHLORIDE [Suspect]
     Active Substance: CLINDAMYCIN HYDROCHLORIDE
     Indication: Dermo-hypodermitis
     Dosage: CHLORHYDRATE DE CLINDAMYCINE
     Route: 065
     Dates: start: 20240209, end: 20240217
  5. IPRATROPIUM [Suspect]
     Active Substance: IPRATROPIUM
     Indication: Asthmatic crisis
     Dosage: IPRATROPIUM BROMIDE
     Route: 065
     Dates: start: 20240210, end: 20240218
  6. ENOXAPARIN SODIUM [Concomitant]
     Active Substance: ENOXAPARIN SODIUM
     Indication: Product used for unknown indication
     Dosage: ENOXAPARINE SODIQUE ((MAMMAL/PIG/GUTTUM MUCOSA))
     Route: 065
     Dates: start: 20240209
  7. COLCHICINE [Suspect]
     Active Substance: COLCHICINE
     Indication: Gout
     Route: 048
     Dates: start: 20240211, end: 20240219
  8. MORPHINE [Concomitant]
     Active Substance: MORPHINE
     Indication: Product used for unknown indication
     Route: 065
     Dates: start: 20240211

REACTIONS (1)
  - Acute generalised exanthematous pustulosis [Recovering/Resolving]

NARRATIVE: CASE EVENT DATE: 20240215
